FAERS Safety Report 10155475 (Version 1)
Quarter: 2014Q2

REPORT INFORMATION
  Report Type: Spontaneous
  Country: US (occurrence: None)
  Receive Date: 20140428
  Receipt Date: 20140428
  Transmission Date: 20141212
  Serious: No
  Sender: FDA-Public Use
  Company Number: KAD201404-000403

PATIENT
  Age: 72 Year
  Sex: Female
  Weight: 61.68 kg

DRUGS (9)
  1. RIBASPHERE RIBAPAK (RIBAVIRIN) [Suspect]
     Indication: HEPATITIS C
     Dosage: 800 MG, DAILY (400 MG IN AM AND IN PM), ORAL
     Route: 048
     Dates: start: 20140226, end: 20140312
  2. ALDACTONE (SPIRONOLACTONE) [Concomitant]
  3. AMLODIPINE (AMLODIPINE) [Concomitant]
  4. ASPIRIN (ACETYLSALICYLIC ACID) [Concomitant]
  5. ATORVASTATIN (ATORVASTATIN) [Concomitant]
  6. LASIX (FUROSEMIDE) (TABLETS) [Concomitant]
  7. DEXILANT (DEXLANSOPRAZOLE) [Concomitant]
  8. ZOLAZEPAM (ZOLAZEPAM) [Concomitant]
  9. METAPROLOL TARTRATE (METAPROLOL TARTRATE) [Concomitant]

REACTIONS (1)
  - Anaemia [None]
